FAERS Safety Report 11911506 (Version 4)
Quarter: 2016Q1

REPORT INFORMATION
  Report Type: Spontaneous
  Country: US (occurrence: US)
  Receive Date: 20160112
  Receipt Date: 20160308
  Transmission Date: 20160526
  Serious: No
  Sender: FDA-Public Use
  Company Number: US-PFIZER INC-2016009383

PATIENT
  Age: 10 Year
  Sex: Male
  Weight: 25.85 kg

DRUGS (5)
  1. QUILLIVANT XR [Suspect]
     Active Substance: METHYLPHENIDATE HYDROCHLORIDE
     Indication: ATTENTION DEFICIT/HYPERACTIVITY DISORDER
     Dosage: 4 ML, IN THE MORNING
     Route: 048
     Dates: start: 20151126
  2. QUILLIVANT XR [Suspect]
     Active Substance: METHYLPHENIDATE HYDROCHLORIDE
     Dosage: 4MLS IN THE MORNING AND 3MLS IN THE AFTERNOON AND THE MORNING DOSE COULD BE INCREASED TO 5MLS
     Dates: start: 20151222
  3. QUILLIVANT XR [Suspect]
     Active Substance: METHYLPHENIDATE HYDROCHLORIDE
     Dosage: 15 MG, 2X/DAY (IN THE MORNING AND AT LUNCH)
  4. QUILLIVANT XR [Suspect]
     Active Substance: METHYLPHENIDATE HYDROCHLORIDE
     Dosage: 5 ML, UNK
  5. QUILLIVANT XR [Suspect]
     Active Substance: METHYLPHENIDATE HYDROCHLORIDE
     Dosage: 4.5 ML, UNK

REACTIONS (8)
  - Abnormal behaviour [Unknown]
  - Inappropriate schedule of drug administration [Unknown]
  - Drug ineffective [Unknown]
  - Weight increased [Unknown]
  - Wrong technique in product usage process [Unknown]
  - Body height increased [Unknown]
  - Incorrect dose administered [Unknown]
  - Increased appetite [Not Recovered/Not Resolved]

NARRATIVE: CASE EVENT DATE: 20151222
